FAERS Safety Report 20694689 (Version 1)
Quarter: 2022Q2

REPORT INFORMATION
  Report Type: Other
  Country: GB (occurrence: GB)
  Receive Date: 20220411
  Receipt Date: 20220411
  Transmission Date: 20220721
  Serious: Yes (Hospitalization)
  Sender: FDA-Public Use
  Company Number: None

PATIENT
  Sex: Female

DRUGS (5)
  1. PREDNISOLONE [Suspect]
     Active Substance: PREDNISOLONE
     Indication: Giant cell arteritis
     Dosage: 60 MILLIGRAM DAILY
     Route: 065
     Dates: start: 20211209
  2. PREDNISOLONE [Suspect]
     Active Substance: PREDNISOLONE
     Dosage: 50 MILLIGRAM
     Route: 065
     Dates: start: 20211231
  3. PREDNISOLONE [Suspect]
     Active Substance: PREDNISOLONE
     Dosage: 40 MILLIGRAM
     Route: 065
     Dates: start: 20220220
  4. PREDNISOLONE [Suspect]
     Active Substance: PREDNISOLONE
     Dosage: 30 MILLIGRAM
     Route: 065
     Dates: start: 20220225
  5. PREDNISOLONE [Suspect]
     Active Substance: PREDNISOLONE
     Dosage: 25 MILLIGRAM
     Route: 065
     Dates: start: 20220323

REACTIONS (1)
  - Loss of consciousness [Recovered/Resolved]
